FAERS Safety Report 20187555 (Version 5)
Quarter: 2022Q1

REPORT INFORMATION
  Report Type: Spontaneous
  Country: US (occurrence: US)
  Receive Date: 20211215
  Receipt Date: 20220201
  Transmission Date: 20220424
  Serious: Yes (Death, Other)
  Sender: FDA-Public Use
  Company Number: US-CELGENE-USA-20211203194

PATIENT
  Age: 58 Year
  Sex: Female

DRUGS (22)
  1. REVLIMID [Suspect]
     Active Substance: LENALIDOMIDE
     Indication: Plasma cell myeloma
     Dosage: 25 MILLIGRAM
     Route: 048
     Dates: start: 201806
  2. REVLIMID [Suspect]
     Active Substance: LENALIDOMIDE
     Dosage: 10 MILLIGRAM
     Route: 048
     Dates: start: 201808
  3. REVLIMID [Suspect]
     Active Substance: LENALIDOMIDE
     Dosage: 10 MILLIGRAM
     Route: 048
     Dates: start: 202103
  4. REVLIMID [Suspect]
     Active Substance: LENALIDOMIDE
     Dosage: 10 MILLIGRAM
     Route: 048
     Dates: start: 20211209
  5. AMLODIPINE [Concomitant]
     Active Substance: AMLODIPINE BESYLATE
     Indication: Product used for unknown indication
     Dosage: 10 MILLIGRAM
     Route: 048
     Dates: start: 20190925
  6. B Complex-C-Folic Acid [Concomitant]
     Indication: Product used for unknown indication
     Dosage: 1 MILLIGRAM
     Route: 048
     Dates: start: 20210621
  7. Calcium Cab- Cholecalciferol [Concomitant]
     Indication: Product used for unknown indication
     Dosage: 600-400 MILLIGRAM
     Route: 048
     Dates: start: 20211206
  8. Calcium Carbonate-vit D-Min [Concomitant]
     Indication: Product used for unknown indication
     Dosage: 600-400 MILLIGRAM
     Route: 048
     Dates: start: 20210713
  9. ERGOCALCIFEROL [Concomitant]
     Active Substance: ERGOCALCIFEROL
     Indication: Product used for unknown indication
     Dosage: .1786 MILLIGRAM
     Route: 048
     Dates: start: 20201231
  10. FERROUS SULFATE [Concomitant]
     Active Substance: FERROUS SULFATE
     Indication: Product used for unknown indication
     Dosage: 325 MILLIGRAM
     Route: 048
     Dates: start: 20211206
  11. HYDROCHLOROTHIAZIDE [Concomitant]
     Active Substance: HYDROCHLOROTHIAZIDE
     Indication: Blood pressure measurement
     Dosage: 25 MILLIGRAM
     Route: 048
     Dates: start: 20211210
  12. HYDROCHLOROTHIAZIDE [Concomitant]
     Active Substance: HYDROCHLOROTHIAZIDE
     Indication: Ill-defined disorder
  13. VIMPAT [Concomitant]
     Active Substance: LACOSAMIDE
     Indication: Product used for unknown indication
     Dosage: 200 MILLIGRAM
     Route: 048
     Dates: start: 20211206
  14. LEVETIRACETAM [Concomitant]
     Active Substance: LEVETIRACETAM
     Indication: Product used for unknown indication
     Dosage: 2000 MILLIGRAM
     Route: 048
     Dates: start: 20201017
  15. METFORMIN [Concomitant]
     Active Substance: METFORMIN HYDROCHLORIDE
     Indication: Product used for unknown indication
     Dosage: 500 MILLIGRAM
     Route: 048
     Dates: start: 20210214
  16. METOPROLOL SUCCINATE [Concomitant]
     Active Substance: METOPROLOL SUCCINATE
     Indication: Product used for unknown indication
     Dosage: 24 HOURS
     Route: 048
     Dates: start: 20210707
  17. ONDANSETRON [Concomitant]
     Active Substance: ONDANSETRON
     Indication: Product used for unknown indication
     Dosage: 8 HOURS AS NEEDED
     Route: 048
     Dates: start: 20180627
  18. POTASSIUM CHLORIDE [Concomitant]
     Active Substance: POTASSIUM CHLORIDE
     Indication: Product used for unknown indication
     Dosage: 20 MILLIEQUIVALENTS
     Route: 048
     Dates: start: 20211215
  19. PRAVASTATIN [Concomitant]
     Active Substance: PRAVASTATIN
     Indication: Product used for unknown indication
     Dosage: 40 MILLIGRAM
     Route: 048
     Dates: start: 20220111
  20. RISPERIDONE [Concomitant]
     Active Substance: RISPERIDONE
     Indication: Product used for unknown indication
     Dosage: 40 MILLIGRAM
     Route: 048
     Dates: start: 20220115
  21. Senna- Docusate [Concomitant]
     Indication: Product used for unknown indication
     Dosage: AS NEEDED
     Route: 048
  22. TRIAMCINOLONE [Concomitant]
     Active Substance: TRIAMCINOLONE
     Indication: Product used for unknown indication
     Route: 065
     Dates: start: 20160623

REACTIONS (2)
  - Death [Fatal]
  - Pancytopenia [Unknown]

NARRATIVE: CASE EVENT DATE: 20211209
